FAERS Safety Report 10410074 (Version 1)
Quarter: 2014Q3

REPORT INFORMATION
  Report Type: Spontaneous
  Country: US (occurrence: US)
  Receive Date: 20140826
  Receipt Date: 20140826
  Transmission Date: 20150326
  Serious: Yes (Disabling)
  Sender: FDA-Public Use
  Company Number: US-SHIONOGI, INC.-2014000798

PATIENT
  Age: 60 Year

DRUGS (1)
  1. OSPHENA [Suspect]
     Active Substance: OSPEMIFENE
     Indication: DYSPAREUNIA
     Dosage: UNK
     Dates: start: 20140528, end: 20140816

REACTIONS (3)
  - Migraine [Unknown]
  - Eczema [Unknown]
  - Exertional headache [Not Recovered/Not Resolved]

NARRATIVE: CASE EVENT DATE: 2014
